FAERS Safety Report 7264723-1 (Version None)
Quarter: 2011Q1

REPORT INFORMATION
  Report Type: 
  Country: None (occurrence: None)
  Receive Date: 20110131
  Receipt Date: 20110121
  Transmission Date: 20110831
  Serious: Yes (Hospitalization)
  Sender: FDA-Public Use
  Company Number: US-JNJFOC-20110106191

PATIENT
  Sex: Female

DRUGS (11)
  1. CARFILZOMIB [Suspect]
     Indication: MULTIPLE MYELOMA
     Route: 042
  2. FAMCICLOVIR [Concomitant]
  3. PREVACID [Concomitant]
     Route: 048
  4. LEVAQUIN [Suspect]
     Indication: PRODUCT USED FOR UNKNOWN INDICATION
     Route: 065
  5. REVLIMID [Suspect]
     Indication: MULTIPLE MYELOMA
     Route: 048
  6. DAPSONE [Suspect]
     Indication: ILL-DEFINED DISORDER
     Route: 065
  7. REVLIMID [Suspect]
     Route: 048
  8. DEXAMETHASONE [Suspect]
     Indication: MULTIPLE MYELOMA
     Route: 048
  9. ASA [Concomitant]
     Route: 048
  10. ONDANSETRON [Concomitant]
     Route: 048
  11. ALLOPURINOL [Concomitant]

REACTIONS (5)
  - OXYGEN SATURATION DECREASED [None]
  - RASH GENERALISED [None]
  - SWELLING [None]
  - SINUS ARRHYTHMIA [None]
  - PALPITATIONS [None]
